FAERS Safety Report 10514111 (Version 2)
Quarter: 2014Q4

REPORT INFORMATION
  Report Type: Spontaneous
  Country: US (occurrence: US)
  Receive Date: 20141013
  Receipt Date: 20141201
  Transmission Date: 20150528
  Serious: Yes (Other)
  Sender: FDA-Public Use
  Company Number: US-TEVA-514230USA

PATIENT
  Sex: Female

DRUGS (1)
  1. CLARAVIS [Suspect]
     Active Substance: ISOTRETINOIN
     Route: 048
     Dates: start: 20131205, end: 20140904

REACTIONS (9)
  - Seizure like phenomena [Unknown]
  - Mood altered [Unknown]
  - Paediatric autoimmune neuropsychiatric disorders associated with streptococcal infection [Unknown]
  - Seizure [Unknown]
  - Incoherent [Unknown]
  - Confusional state [Unknown]
  - Crying [Unknown]
  - Chorea [Unknown]
  - Anxiety [Unknown]
